FAERS Safety Report 8848000 (Version 1)
Quarter: 2012Q4

REPORT INFORMATION
  Report Type: 
  Country: FR (occurrence: FR)
  Receive Date: 20121018
  Receipt Date: 20121018
  Transmission Date: 20130627
  Serious: Yes (Hospitalization)
  Sender: FDA-Public Use
  Company Number: FR-ASTRAZENECA-2012SE78019

PATIENT
  Age: 28213 Day
  Sex: Male

DRUGS (3)
  1. MOPRAL [Suspect]
     Indication: ABDOMINAL PAIN UPPER
     Route: 048
     Dates: start: 2011, end: 20120806
  2. SERETIDE DISKUS [Concomitant]
     Indication: CHRONIC OBSTRUCTIVE PULMONARY DISEASE
     Route: 055
     Dates: end: 20120806
  3. URSOLVAN [Concomitant]
     Indication: HEPATIC CIRRHOSIS
     Route: 048
     Dates: start: 201202, end: 20120802

REACTIONS (4)
  - Autoimmune thrombocytopenia [Unknown]
  - Subdural haematoma [Unknown]
  - Diarrhoea [Unknown]
  - Helicobacter test positive [Unknown]
